FAERS Safety Report 18517393 (Version 2)
Quarter: 2020Q4

REPORT INFORMATION
  Report Type: Spontaneous
  Country: CH (occurrence: CH)
  Receive Date: 20201118
  Receipt Date: 20201218
  Transmission Date: 20210114
  Serious: Yes (Other)
  Sender: FDA-Public Use
  Company Number: CH-ELI_LILLY_AND_COMPANY-CH202011005788

PATIENT
  Age: 56 Year
  Sex: Female

DRUGS (1)
  1. EMGALITY [Suspect]
     Active Substance: GALCANEZUMAB-GNLM
     Indication: MIGRAINE WITH AURA
     Dosage: 120 MG, UNK
     Route: 058
     Dates: start: 202007

REACTIONS (1)
  - Type IV hypersensitivity reaction [Unknown]

NARRATIVE: CASE EVENT DATE: 202007
